FAERS Safety Report 23643564 (Version 1)
Quarter: 2024Q1

REPORT INFORMATION
  Report Type: Spontaneous
  Country: CA (occurrence: CA)
  Receive Date: 20240318
  Receipt Date: 20240318
  Transmission Date: 20240409
  Serious: Yes (Other)
  Sender: FDA-Public Use
  Company Number: CA-JNJFOC-20240339873

PATIENT
  Sex: Male

DRUGS (1)
  1. ELMIRON [Suspect]
     Active Substance: PENTOSAN POLYSULFATE SODIUM
     Indication: Product used for unknown indication
     Dosage: PER DAY
     Route: 048
     Dates: end: 202201

REACTIONS (3)
  - Pigmentary maculopathy [Unknown]
  - Retinopathy [Not Recovered/Not Resolved]
  - Off label use [Unknown]
